FAERS Safety Report 12110157 (Version 1)
Quarter: 2016Q1

REPORT INFORMATION
  Report Type: Spontaneous
  Country: US (occurrence: US)
  Receive Date: 20160224
  Receipt Date: 20160224
  Transmission Date: 20160526
  Serious: No
  Sender: FDA-Public Use
  Company Number: US-LEO PHARMA-240335

PATIENT
  Sex: Female

DRUGS (1)
  1. PICATO [Suspect]
     Active Substance: INGENOL MEBUTATE
     Indication: PRODUCT USED FOR UNKNOWN INDICATION

REACTIONS (5)
  - Headache [Not Recovered/Not Resolved]
  - Drug administered at inappropriate site [Unknown]
  - Application site swelling [Not Recovered/Not Resolved]
  - Application site erythema [Not Recovered/Not Resolved]
  - Application site reaction [Not Recovered/Not Resolved]
